FAERS Safety Report 7353585-X (Version None)
Quarter: 2011Q1

REPORT INFORMATION
  Report Type: 
  Country: None (occurrence: None)
  Receive Date: 20110315
  Receipt Date: 20110302
  Transmission Date: 20110831
  Serious: Yes (Death, Life-Threatening)
  Sender: FDA-Public Use
  Company Number: US-MYLANLABS-2011S1004443

PATIENT
  Age: 62 Year
  Sex: Male
  Weight: 68.7 kg

DRUGS (6)
  1. ROCURONIUM BROMIDE [Suspect]
     Indication: MAINTENANCE OF ANAESTHESIA
     Route: 042
     Dates: start: 20090728, end: 20090728
  2. SEVOFLURANE [Suspect]
     Indication: MAINTENANCE OF ANAESTHESIA
     Route: 055
     Dates: start: 20090728, end: 20090728
  3. ULTIVA [Suspect]
     Indication: MAINTENANCE OF ANAESTHESIA
     Dosage: 0.1-0.5 UG/KG/MIN
     Route: 042
     Dates: start: 20090728, end: 20090728
  4. PROPOFOL [Suspect]
     Indication: MAINTENANCE OF ANAESTHESIA
     Dosage: 1-3MG/DAY
     Route: 042
     Dates: start: 20090728, end: 20090728
  5. MEPIVACAINE HCL [Suspect]
     Indication: MAINTENANCE OF ANAESTHESIA
     Route: 008
     Dates: start: 20090728, end: 20090728
  6. MEPIVACAINE HCL [Suspect]
     Route: 008
     Dates: start: 20090728, end: 20090728

REACTIONS (2)
  - HYPERTHERMIA MALIGNANT [None]
  - BILE DUCT CANCER [None]
